FAERS Safety Report 7899696-1 (Version None)
Quarter: 2011Q4

REPORT INFORMATION
  Report Type: 
  Country: None (occurrence: None)
  Receive Date: 20111107
  Receipt Date: 20110918
  Transmission Date: 20120403
  Serious: No
  Sender: FDA-Public Use
  Company Number: US-AMGEN-USASP2011048125

PATIENT
  Age: 33 Year
  Sex: Female

DRUGS (2)
  1. ENBREL [Suspect]
     Indication: RHEUMATOID ARTHRITIS
     Dosage: 50 MG, QWK
     Dates: start: 20110909
  2. METHOTREXATE [Concomitant]
     Dates: start: 20110629

REACTIONS (7)
  - INJECTION SITE PAIN [None]
  - INJECTION SITE HAEMATOMA [None]
  - MENORRHAGIA [None]
  - PAIN [None]
  - PAIN IN EXTREMITY [None]
  - JOINT STIFFNESS [None]
  - ABDOMINAL PAIN [None]
